FAERS Safety Report 10333572 (Version 2)
Quarter: 2015Q3

REPORT INFORMATION
  Report Type: Spontaneous
  Country: PT (occurrence: PT)
  Receive Date: 20140723
  Receipt Date: 20150924
  Transmission Date: 20151125
  Serious: Yes (Other)
  Sender: FDA-Public Use
  Company Number: PT-009507513-1407PRT002664

PATIENT
  Age: 59 Year
  Sex: Female
  Weight: 60 kg

DRUGS (13)
  1. BRIDION [Suspect]
     Active Substance: SUGAMMADEX
     Indication: NEUROMUSCULAR BLOCKADE REVERSAL
     Dosage: 1ST TIME 150MG, 2ND TIME 100 MG, 3RD TIME 200 MG
     Dates: start: 20140702, end: 20140702
  2. ROCURONIUM BROMIDE. [Suspect]
     Active Substance: ROCURONIUM BROMIDE
     Indication: GENERAL ANAESTHESIA
  3. FENTANYL. [Concomitant]
     Active Substance: FENTANYL
     Indication: GENERAL ANAESTHESIA
  4. PROPOFOL. [Concomitant]
     Active Substance: PROPOFOL
     Indication: ANALGESIC THERAPY
     Dosage: UNK
     Dates: start: 20140702
  5. PROPOFOL. [Concomitant]
     Active Substance: PROPOFOL
     Dosage: 100 MG, UNK
  6. DROPERIDOL. [Concomitant]
     Active Substance: DROPERIDOL
     Indication: PROPHYLAXIS OF NAUSEA AND VOMITING
     Dosage: 0.625 MG, UNK
  7. CEFAZOLIN [Concomitant]
     Active Substance: CEFAZOLIN
     Indication: ANTIBIOTIC PROPHYLAXIS
     Dosage: 2 G, UNK
  8. FENTANYL. [Concomitant]
     Active Substance: FENTANYL
     Indication: ANALGESIC THERAPY
     Dosage: INTRA-SURGICALLY, 0.1 MG BEFORE INTUBATION AND 150 MICROGRAM
     Dates: start: 20140702
  9. TRAMADOL HYDROCHLORIDE. [Concomitant]
     Active Substance: TRAMADOL HYDROCHLORIDE
     Indication: ANALGESIC THERAPY
     Dosage: 100 MG, UNK
     Route: 042
     Dates: start: 20140702
  10. PROPOFOL. [Concomitant]
     Active Substance: PROPOFOL
     Dosage: 150 MG, UNK
     Dates: start: 201407
  11. ROCURONIUM BROMIDE. [Suspect]
     Active Substance: ROCURONIUM BROMIDE
     Indication: ANALGESIC THERAPY
     Dosage: 1ST 50 MG (0.83 MG/KG) AND 2ND 30 MG (0.5MG/KG) AFTER THE SUGAMMADEX ADMINISTRATION
     Dates: start: 20140702
  12. ACETAMINOPHEN. [Concomitant]
     Active Substance: ACETAMINOPHEN
     Indication: ANALGESIC THERAPY
     Dosage: 1 G, UNK
     Route: 042
     Dates: start: 20140702
  13. DEXAMETHASONE. [Concomitant]
     Active Substance: DEXAMETHASONE
     Indication: PROPHYLAXIS OF NAUSEA AND VOMITING
     Dosage: 4 MG, UNK
     Route: 048

REACTIONS (5)
  - Oedema [Unknown]
  - Venous thrombosis [Unknown]
  - Spinal cord haematoma [Unknown]
  - Therapeutic response unexpected [Unknown]
  - Surgery [Unknown]

NARRATIVE: CASE EVENT DATE: 201407
